FAERS Safety Report 13412411 (Version 1)
Quarter: 2017Q2

REPORT INFORMATION
  Report Type: Spontaneous
  Country: US (occurrence: US)
  Receive Date: 20170406
  Receipt Date: 20170406
  Transmission Date: 20170830
  Serious: No
  Sender: FDA-Public Use
  Company Number: US-JNJFOC-20170310413

PATIENT
  Sex: Male

DRUGS (1)
  1. RISPERIDONE ORO DISPERSIBLE [Suspect]
     Active Substance: RISPERIDONE
     Indication: PRODUCT USED FOR UNKNOWN INDICATION
     Route: 048

REACTIONS (3)
  - Disorientation [Unknown]
  - Anxiety [Unknown]
  - Confusional state [Unknown]
